FAERS Safety Report 5235944-4 (Version None)
Quarter: 2007Q1

REPORT INFORMATION
  Report Type: 
  Country: None (occurrence: None)
  Receive Date: 20061208
  Receipt Date: 20060106
  Transmission Date: 20070707
  Serious: Yes (Other)
  Sender: FDA-Public Use
  Company Number: 2006UW00181

PATIENT
  Age: 59 Year
  Sex: Male

DRUGS (8)
  1. CRESTOR [Suspect]
     Dosage: 10 MG PO
     Route: 048
     Dates: start: 20051202, end: 20051221
  2. COREG [Concomitant]
  3. ALTACE [Concomitant]
  4. PLAVIX [Concomitant]
  5. ASPIRIN [Concomitant]
  6. FISH OIL [Concomitant]
  7. ADVIL [Concomitant]
  8. FOLIC ACID [Concomitant]

REACTIONS (5)
  - FATIGUE [None]
  - JOINT DISLOCATION [None]
  - MUSCLE INJURY [None]
  - MUSCULAR WEAKNESS [None]
  - PAIN [None]
